FAERS Safety Report 7562883-6 (Version None)
Quarter: 2011Q2

REPORT INFORMATION
  Report Type: 
  Country: None (occurrence: None)
  Receive Date: 20110622
  Receipt Date: 20110617
  Transmission Date: 20111010
  Serious: Yes (Hospitalization, Other)
  Sender: FDA-Public Use
  Company Number: US-PFIZER INC-2011128710

PATIENT
  Age: 11 Year
  Sex: Male

DRUGS (5)
  1. PROPOFOL [Interacting]
     Dosage: UNK
     Route: 065
  2. ISOFLURANE [Interacting]
     Indication: GENERAL ANAESTHESIA
     Dosage: UNK
     Route: 045
  3. THIOPENTAL SODIUM [Interacting]
     Dosage: UNK
  4. ONDANSETRON [Suspect]
     Dosage: UNK
  5. PANCURONIUM [Interacting]
     Dosage: UNK

REACTIONS (2)
  - TORSADE DE POINTES [None]
  - DRUG INTERACTION [None]
